FAERS Safety Report 25990309 (Version 1)
Quarter: 2025Q4

REPORT INFORMATION
  Report Type: Spontaneous
  Country: JP (occurrence: JP)
  Receive Date: 20251103
  Receipt Date: 20251103
  Transmission Date: 20260118
  Serious: Yes (Hospitalization, Other)
  Sender: PFIZER
  Company Number: JP-ONO-2025JP019494

PATIENT
  Age: 80 Year
  Sex: Female
  Weight: 44 kg

DRUGS (9)
  1. BRAFTOVI [Suspect]
     Active Substance: ENCORAFENIB
     Indication: Colon cancer
     Dosage: 300 MG, EVERYDAY
     Route: 048
     Dates: start: 20250509, end: 20250528
  2. BRAFTOVI [Suspect]
     Active Substance: ENCORAFENIB
     Dosage: UNK
     Route: 048
     Dates: start: 20250620
  3. MEKTOVI [Suspect]
     Active Substance: BINIMETINIB
     Indication: Colon cancer
     Dosage: 45 MG, Q12H
     Route: 048
     Dates: start: 20250509, end: 20250528
  4. MEKTOVI [Suspect]
     Active Substance: BINIMETINIB
     Dosage: UNK
     Route: 048
     Dates: start: 20250620
  5. ERBITUX [Concomitant]
     Active Substance: CETUXIMAB
     Indication: Colon cancer
     Dosage: 330 MG, QW
     Route: 042
     Dates: start: 20250509, end: 20250530
  6. ERBITUX [Concomitant]
     Active Substance: CETUXIMAB
     Dosage: UNK
     Route: 042
     Dates: start: 20250620
  7. LOPERAMIDE HYDROCHLORIDE [Concomitant]
     Active Substance: LOPERAMIDE HYDROCHLORIDE
     Dosage: UNK
     Route: 048
     Dates: start: 20250516, end: 20250530
  8. RINDERON VG [Concomitant]
     Active Substance: BETAMETHASONE VALERATE\GENTAMICIN SULFATE
     Dosage: UNK
     Route: 061
     Dates: start: 20250509, end: 20250530
  9. HEPARINOID [Concomitant]
     Dosage: UNK
     Route: 061
     Dates: start: 20250509, end: 20250530

REACTIONS (11)
  - Renal impairment [Recovered/Resolved]
  - Dehydration [Recovered/Resolved]
  - Muscular weakness [Recovered/Resolved]
  - Faeces discoloured [Recovered/Resolved]
  - Inflammation [Unknown]
  - Blood creatine phosphokinase increased [Recovered/Resolved]
  - Depressed level of consciousness [Unknown]
  - Fall [Unknown]
  - Abnormal behaviour [Recovered/Resolved]
  - Incontinence [Recovered/Resolved]
  - Memory impairment [Unknown]

NARRATIVE: CASE EVENT DATE: 20250523
